FAERS Safety Report 15066337 (Version 1)
Quarter: 2018Q2

REPORT INFORMATION
  Report Type: Spontaneous
  Country: US (occurrence: US)
  Receive Date: 20180626
  Receipt Date: 20180626
  Transmission Date: 20180711
  Serious: Yes (Hospitalization)
  Sender: FDA-Public Use
  Company Number: US-CELGENEUS-USA-20180606601

PATIENT
  Sex: Male
  Weight: 63.11 kg

DRUGS (12)
  1. THALOMID [Suspect]
     Active Substance: THALIDOMIDE
     Dosage: 100 MILLIGRAM
     Route: 048
     Dates: start: 201712
  2. HYDROCHLOROTHIAZIDE. [Concomitant]
     Active Substance: HYDROCHLOROTHIAZIDE
     Indication: PRODUCT USED FOR UNKNOWN INDICATION
     Dosage: 12.5 MILLIGRAM
     Route: 065
  3. THALOMID [Suspect]
     Active Substance: THALIDOMIDE
     Dosage: 200 MILLIGRAM
     Route: 048
     Dates: start: 20170712
  4. THALOMID [Suspect]
     Active Substance: THALIDOMIDE
     Dosage: 300 MILLIGRAM
     Route: 048
     Dates: start: 201804
  5. POTASSIUM GLUCONATE [Concomitant]
     Active Substance: POTASSIUM GLUCONATE
     Indication: PRODUCT USED FOR UNKNOWN INDICATION
     Route: 065
  6. AMOXICILLIN-CLAVULANAT [Concomitant]
     Indication: PRODUCT USED FOR UNKNOWN INDICATION
     Dosage: 875/125
     Route: 065
  7. THALOMID [Suspect]
     Active Substance: THALIDOMIDE
     Dosage: 300 MILLIGRAM
     Route: 048
     Dates: start: 201701
  8. MIRTAZAPINE. [Concomitant]
     Active Substance: MIRTAZAPINE
     Indication: PRODUCT USED FOR UNKNOWN INDICATION
     Dosage: 15 MILLIGRAM
     Route: 065
  9. FOLIC ACID. [Concomitant]
     Active Substance: FOLIC ACID
     Indication: PRODUCT USED FOR UNKNOWN INDICATION
     Dosage: 20 MILLIGRAM
     Route: 065
  10. THALOMID [Suspect]
     Active Substance: THALIDOMIDE
     Indication: LEPROSY
     Dosage: 200 MILLIGRAM
     Route: 048
     Dates: start: 201612
  11. THALOMID [Suspect]
     Active Substance: THALIDOMIDE
     Dosage: 200 MILLIGRAM
     Route: 048
     Dates: start: 201705
  12. MULTIVITAMINS [Concomitant]
     Active Substance: VITAMINS
     Indication: PRODUCT USED FOR UNKNOWN INDICATION
     Route: 065

REACTIONS (1)
  - Cholelithiasis [Recovered/Resolved]
